FAERS Safety Report 25746218 (Version 2)
Quarter: 2025Q3

REPORT INFORMATION
  Report Type: Spontaneous
  Country: US (occurrence: US)
  Receive Date: 20250901
  Receipt Date: 20250903
  Transmission Date: 20251020
  Serious: No
  Sender: AMGEN
  Company Number: US-AMGEN-USASP2025170831

PATIENT
  Age: 46 Year
  Sex: Female

DRUGS (2)
  1. KANJINTI [Suspect]
     Active Substance: TRASTUZUMAB-ANNS
     Indication: Breast cancer
     Route: 065
     Dates: end: 20250701
  2. KANJINTI [Suspect]
     Active Substance: TRASTUZUMAB-ANNS
     Route: 065
     Dates: start: 20250722

REACTIONS (2)
  - Blood pressure decreased [Unknown]
  - Malaise [Unknown]

NARRATIVE: CASE EVENT DATE: 20250701
